FAERS Safety Report 7486400-4 (Version None)
Quarter: 2011Q2

REPORT INFORMATION
  Report Type: 
  Country: None (occurrence: None)
  Receive Date: 20110517
  Receipt Date: 20100625
  Transmission Date: 20111010
  Serious: No
  Sender: FDA-Public Use
  Company Number: US-PFIZER INC-2010080330

PATIENT
  Age: 87 Year
  Sex: Female
  Weight: 71.655 kg

DRUGS (1)
  1. OGEN [Suspect]
     Indication: HORMONE REPLACEMENT THERAPY
     Dosage: ONE-HALF OF 1.25 MG, DAILY
     Dates: start: 19700101

REACTIONS (2)
  - INJURY [None]
  - FALL [None]
